FAERS Safety Report 15645614 (Version 2)
Quarter: 2018Q4

REPORT INFORMATION
  Report Type: Spontaneous
  Country: US (occurrence: US)
  Receive Date: 20181121
  Receipt Date: 20181210
  Transmission Date: 20190205
  Serious: No
  Sender: FDA-Public Use
  Company Number: US-ALLERGAN-1854106US

PATIENT
  Age: 49 Year
  Sex: Female

DRUGS (1)
  1. BOTOX COSMETIC [Suspect]
     Active Substance: ONABOTULINUMTOXINA
     Indication: SKIN WRINKLING
     Dosage: INTRAMUSCULAR SINGLE DOSE, LESS THAN 30 UNITS
     Dates: start: 20180909, end: 20180909

REACTIONS (2)
  - Diabetes mellitus [Unknown]
  - Food poisoning [Recovered/Resolved]
